FAERS Safety Report 4923960-9 (Version None)
Quarter: 2006Q1

REPORT INFORMATION
  Report Type: 
  Country: None (occurrence: None)
  Receive Date: 20060227
  Receipt Date: 20060217
  Transmission Date: 20060701
  Serious: Yes (Hospitalization)
  Sender: FDA-Public Use
  Company Number: US-MERCK-0602USA04785

PATIENT
  Age: 67 Year
  Sex: Male
  Weight: 80 kg

DRUGS (2)
  1. VIOXX [Suspect]
     Indication: RHEUMATOID ARTHRITIS
     Route: 048
     Dates: start: 20010402, end: 20040616
  2. AVANDIA [Concomitant]
     Indication: DIABETES MELLITUS
     Route: 065
     Dates: start: 19900101

REACTIONS (4)
  - BLOOD CHOLESTEROL INCREASED [None]
  - CARDIAC FAILURE CONGESTIVE [None]
  - HYPERTENSION [None]
  - TRANSIENT ISCHAEMIC ATTACK [None]
